FAERS Safety Report 15535894 (Version 1)
Quarter: 2018Q4

REPORT INFORMATION
  Report Type: Spontaneous
  Country: US (occurrence: US)
  Receive Date: 20181021
  Receipt Date: 20181021
  Transmission Date: 20190205
  Serious: Yes (Hospitalization)
  Sender: FDA-Public Use
  Company Number: None

PATIENT
  Age: 17 Year
  Sex: Male

DRUGS (1)
  1. EPOGEN [Suspect]
     Active Substance: ERYTHROPOIETIN
     Indication: END STAGE RENAL DISEASE
     Dosage: ?          OTHER FREQUENCY:TWO TIMES PER WEEK;?
     Route: 058
     Dates: start: 20180222

REACTIONS (1)
  - Haemodialysis [None]

NARRATIVE: CASE EVENT DATE: 20181020
